FAERS Safety Report 21554156 (Version 7)
Quarter: 2022Q4

REPORT INFORMATION
  Report Type: Report from Study
  Country: US (occurrence: None)
  Receive Date: 20221104
  Receipt Date: 20221223
  Transmission Date: 20230113
  Serious: Yes (Hospitalization)
  Sender: FDA-Public Use
  Company Number: US-ROCHE-3208845

PATIENT
  Age: 67 Year
  Sex: Male
  Weight: 56 kg

DRUGS (25)
  1. VENETOCLAX [Suspect]
     Active Substance: VENETOCLAX
     Indication: Diffuse large B-cell lymphoma
     Dosage: EVERY DAY 1 TO 5. ON 11/OCT/2022, HE RECEIVED MOST RECENT DOSE (400 MG) OF VENETOCLAX PRIOR TO SAE.
     Route: 048
     Dates: start: 20220902
  2. POLATUZUMAB VEDOTIN [Suspect]
     Active Substance: POLATUZUMAB VEDOTIN
     Indication: Diffuse large B-cell lymphoma
     Dosage: ON 11/OCT/2022, 20-SEP-2022, 31-AUG-2022HE RECEIVED MOST RECENT DOSE (110 MG) OF POLATUZUMAB VEDOTIN
     Route: 042
     Dates: start: 20220830
  3. RITUXIMAB [Suspect]
     Active Substance: RITUXIMAB
     Indication: Diffuse large B-cell lymphoma
     Dosage: ON 11/OCT/2022, 20-SEP-2022 31-AUG-2022 { HE RECEIVED MOST RECENT DOSE (375 MG) OF RITUXIMAB PRIOR T
     Route: 042
     Dates: start: 20220830
  4. CYCLOPHOSPHAMIDE [Suspect]
     Active Substance: CYCLOPHOSPHAMIDE
     Indication: Diffuse large B-cell lymphoma
     Dosage: ON 11/OCT/2022, 20-SEP-2022 ,31-AUG-2022 HE RECEIVED MOST RECENT DOSE (1200 MG) OF CYCLOPHOSPHAMIDE
     Route: 042
     Dates: start: 20220830
  5. DOXORUBICIN [Suspect]
     Active Substance: DOXORUBICIN
     Indication: Diffuse large B-cell lymphoma
     Dosage: ON 11/OCT/2022, 20-SEP-2022, 31-AUG-2022 HE RECEIVED MOST RECENT DOSE (85 MG) OF DOXORUBICIN PRIOR T
     Route: 042
     Dates: start: 20220830
  6. PREDNISONE [Suspect]
     Active Substance: PREDNISONE
     Indication: Diffuse large B-cell lymphoma
     Dosage: EVERY DAY 1 TO 5. ON 15/OCT/2022,04-SEP-2022 HE RECEIVED MOST RECENT DOSE OF 100 MG OF PREDNISONE PR
     Route: 048
     Dates: start: 20220830, end: 20220830
  7. PREDNISONE [Suspect]
     Active Substance: PREDNISONE
     Route: 048
     Dates: start: 20220920, end: 20220920
  8. METOCLOPRAMIDE [Concomitant]
     Active Substance: METOCLOPRAMIDE
     Indication: Nausea
     Route: 048
     Dates: start: 20220906
  9. GEMTESA [Concomitant]
     Active Substance: VIBEGRON
     Indication: Pollakiuria
     Route: 048
     Dates: start: 20220906
  10. NORCO [Concomitant]
     Active Substance: ACETAMINOPHEN\HYDROCODONE BITARTRATE
     Indication: Back pain
     Dosage: 5 MG - 325 MG
     Route: 048
  11. PEGFILGRASTIM [Concomitant]
     Active Substance: PEGFILGRASTIM
     Indication: Febrile neutropenia
     Route: 058
     Dates: start: 20220831, end: 20220831
  12. PEGFILGRASTIM [Concomitant]
     Active Substance: PEGFILGRASTIM
     Route: 058
     Dates: start: 20220921, end: 20220921
  13. PEGFILGRASTIM [Concomitant]
     Active Substance: PEGFILGRASTIM
     Route: 058
     Dates: start: 20221012, end: 20221012
  14. PEGFILGRASTIM [Concomitant]
     Active Substance: PEGFILGRASTIM
     Route: 058
     Dates: start: 20221102, end: 20221102
  15. PREDNISONE ACETATE [Concomitant]
     Active Substance: PREDNISONE ACETATE
     Route: 048
     Dates: start: 20220830, end: 20220830
  16. PREDNISONE ACETATE [Concomitant]
     Active Substance: PREDNISONE ACETATE
     Route: 048
     Dates: start: 20221101, end: 20221101
  17. PREDNISONE ACETATE [Concomitant]
     Active Substance: PREDNISONE ACETATE
     Route: 048
     Dates: start: 20220920, end: 20220920
  18. PREDNISONE ACETATE [Concomitant]
     Active Substance: PREDNISONE ACETATE
     Route: 048
     Dates: start: 20221011, end: 20221011
  19. ACETAMINOPHEN [Concomitant]
     Active Substance: ACETAMINOPHEN
     Indication: Product used for unknown indication
     Route: 048
     Dates: start: 20221011, end: 20221011
  20. BENZONATATE [Concomitant]
     Active Substance: BENZONATATE
     Indication: Cough
     Dosage: 100 MG, 3/DAYS
     Route: 048
     Dates: start: 20220928, end: 20221004
  21. BENZONATATE [Concomitant]
     Active Substance: BENZONATATE
     Dosage: 300 MG, 3/DAYS
     Route: 048
     Dates: start: 20221020, end: 20221022
  22. ENOXAPARIN [Concomitant]
     Active Substance: ENOXAPARIN
     Route: 058
     Dates: start: 20220928, end: 20221004
  23. ACETAMINOPHEN\HYDROCODONE [Concomitant]
     Active Substance: ACETAMINOPHEN\HYDROCODONE
     Indication: Pain
     Dosage: 7.5 MG-325 MG
     Route: 048
     Dates: start: 20221020, end: 20221022
  24. VANCOMYCIN [Concomitant]
     Active Substance: VANCOMYCIN
     Indication: Clostridium difficile infection
     Route: 048
     Dates: start: 20221020, end: 20221022
  25. CODEINE PHOSPHATE\GUAIFENESIN [Concomitant]
     Active Substance: CODEINE PHOSPHATE\GUAIFENESIN
     Indication: Cough
     Route: 048
     Dates: start: 20221021, end: 20221022

REACTIONS (5)
  - Diverticulitis [Recovered/Resolved]
  - Rhinovirus infection [Recovered/Resolved]
  - Febrile neutropenia [Recovered/Resolved]
  - Sepsis [Recovered/Resolved]
  - Anaemia [Recovered/Resolved]

NARRATIVE: CASE EVENT DATE: 20220915
